FAERS Safety Report 8154607-9 (Version None)
Quarter: 2012Q1

REPORT INFORMATION
  Report Type: 
  Country: None (occurrence: None)
  Receive Date: 20120221
  Receipt Date: 20120201
  Transmission Date: 20120608
  Serious: Yes (Life-Threatening, Other)
  Sender: FDA-Public Use
  Company Number: TW-ROCHE-1025622

PATIENT
  Age: 61 Year
  Sex: Female

DRUGS (3)
  1. RAMIPRIL [Suspect]
     Indication: HYPERTENSION
  2. ALTEPLASE [Suspect]
     Indication: ISCHAEMIC STROKE
     Route: 040
  3. ALTEPLASE [Suspect]
     Route: 042

REACTIONS (6)
  - LOSS OF CONSCIOUSNESS [None]
  - ABDOMINAL DISCOMFORT [None]
  - NAUSEA [None]
  - ISCHAEMIC STROKE [None]
  - ANAPHYLACTOID SHOCK [None]
  - VOMITING [None]
